FAERS Safety Report 9205860 (Version 1)
Quarter: 2013Q2

REPORT INFORMATION
  Report Type: Spontaneous
  Country: US (occurrence: None)
  Receive Date: 20130401
  Receipt Date: 20130401
  Transmission Date: 20140414
  Serious: Yes (Hospitalization)
  Sender: FDA-Public Use
  Company Number: ACO_35022_2013

PATIENT
  Age: 50 Year
  Sex: Male
  Weight: 70.3 kg

DRUGS (3)
  1. AMPYRA (DALFAMPRIDINE) TABLET, 10 MG [Suspect]
     Indication: GAIT DISTURBANCE
     Route: 048
  2. BACLOFEN (BACLOFEN) TABLET [Concomitant]
  3. VITAMIN D (COLECALCIFEROL) CAPSULE [Concomitant]

REACTIONS (2)
  - Femur fracture [None]
  - Fall [None]
